FAERS Safety Report 13318774 (Version 1)
Quarter: 2017Q1

REPORT INFORMATION
  Report Type: Spontaneous
  Country: US (occurrence: US)
  Receive Date: 20170310
  Receipt Date: 20170310
  Transmission Date: 20170428
  Serious: No
  Sender: FDA-Public Use
  Company Number: US-BAYER-2017-038610

PATIENT
  Age: 58 Year
  Sex: Female
  Weight: 65.99 kg

DRUGS (1)
  1. CLARITIN [Suspect]
     Active Substance: LORATADINE
     Indication: SKIN DISORDER
     Dosage: UNK UNK, BID
     Route: 048
     Dates: start: 201612

REACTIONS (4)
  - Therapeutic response unexpected [Unknown]
  - Product use issue [Unknown]
  - Nervousness [Unknown]
  - Off label use [Unknown]

NARRATIVE: CASE EVENT DATE: 201612
